FAERS Safety Report 5501125-X (Version None)
Quarter: 2007Q4

REPORT INFORMATION
  Report Type: 
  Country: None (occurrence: None)
  Receive Date: 20071029
  Receipt Date: 20071017
  Transmission Date: 20080405
  Serious: Yes (Death, Life-Threatening, Hospitalization, Other)
  Sender: FDA-Public Use
  Company Number: DE-PFIZER INC-2007081397

PATIENT
  Sex: Male

DRUGS (19)
  1. LYRICA [Suspect]
  2. ISOSORBIDE DINITRATE [Concomitant]
  3. TORSEMIDE [Concomitant]
  4. ASPIRIN [Concomitant]
  5. CARMEN [Concomitant]
  6. EBRANTIL [Concomitant]
  7. REKAWAN [Concomitant]
  8. MARCUMAR [Concomitant]
  9. ALT-INSULIN [Concomitant]
  10. ACETAMINOPHEN [Concomitant]
  11. FAMOTIDIN [Concomitant]
  12. CEFUROXIME [Concomitant]
  13. ALL OTHER THERAPEUTIC PRODUCTS [Concomitant]
  14. NOVALGIN [Concomitant]
  15. INSULIN HUMAN [Concomitant]
  16. FRAXIPARIN [Concomitant]
  17. DIOVAN HCT [Concomitant]
  18. TORSEMIDE [Concomitant]
  19. BENZODIAZEPINE DERIVATIVES [Concomitant]

REACTIONS (8)
  - ANGINA PECTORIS [None]
  - ASTHENIA [None]
  - DYSPNOEA EXERTIONAL [None]
  - HEPATIC FAILURE [None]
  - MULTI-ORGAN FAILURE [None]
  - NODAL RHYTHM [None]
  - OEDEMA [None]
  - RENAL FAILURE [None]
